FAERS Safety Report 9694808 (Version 2)
Quarter: 2013Q4

REPORT INFORMATION
  Report Type: Spontaneous
  Country: IT (occurrence: IT)
  Receive Date: 20131119
  Receipt Date: 20131128
  Transmission Date: 20140711
  Serious: Yes (Other)
  Sender: FDA-Public Use
  Company Number: IT-RANBAXY-2013RR-75346

PATIENT
  Age: 40 Year
  Sex: Female

DRUGS (1)
  1. PARACETAMOL [Suspect]
     Indication: DYSMENORRHOEA
     Dosage: 1000 MG, COMPLETE
     Route: 048
     Dates: start: 20130709, end: 20130709

REACTIONS (3)
  - Dyspnoea [Unknown]
  - Paraesthesia [Unknown]
  - Tremor [Unknown]
